FAERS Safety Report 19926336 (Version 4)
Quarter: 2022Q3

REPORT INFORMATION
  Report Type: Report from Study
  Country: BR (occurrence: BR)
  Receive Date: 20211007
  Receipt Date: 20220805
  Transmission Date: 20221027
  Serious: Yes (Other)
  Sender: FDA-Public Use
  Company Number: NVSC2021BR223665

PATIENT
  Sex: Female
  Weight: 75 kg

DRUGS (7)
  1. COSENTYX [Suspect]
     Active Substance: SECUKINUMAB
     Indication: Psoriatic arthropathy
     Dosage: UNK
     Route: 065
     Dates: start: 2021
  2. COSENTYX [Suspect]
     Active Substance: SECUKINUMAB
     Indication: Psoriasis
     Dosage: 300 MG, QW (TWO PENS OF 150 MG) WEEKLY (ATTACK DOSES FOR 5 WEEKS)
     Route: 058
     Dates: start: 20210802, end: 20210830
  3. COSENTYX [Suspect]
     Active Substance: SECUKINUMAB
     Dosage: 300 MG, Q4W (TWO PENS OF 150 MG)
     Route: 058
     Dates: start: 202109
  4. SUSTRATE [Concomitant]
     Active Substance: PROPATYL NITRATE
     Indication: Arrhythmia
     Dosage: 2 DOSAGE FORM, QD (STARTED: ABOUT 8 YEARS AGO)
     Route: 048
  5. HYDROCHLOROTHIAZIDE [Concomitant]
     Active Substance: HYDROCHLOROTHIAZIDE
     Indication: Hypertension
     Dosage: 2 DOSAGE FORM, QD (STARTED: ABOUT 8 YEARS AGO)
     Route: 048
  6. PROPRANOLOL HYDROCHLORIDE [Concomitant]
     Active Substance: PROPRANOLOL HYDROCHLORIDE
     Indication: Hypertension
     Dosage: 2 DOSAGE FORM, QD (STARTED: ABOUT 8 YEARS AGO)
     Route: 048
  7. EUTHYROX [Concomitant]
     Active Substance: LEVOTHYROXINE SODIUM
     Indication: Thyroid disorder
     Dosage: 1 DOSAGE FORM, QD (STARTED: ABOUT 8 YARS AGO)
     Route: 048

REACTIONS (17)
  - Blindness unilateral [Unknown]
  - Psoriatic arthropathy [Recovering/Resolving]
  - Bone disorder [Recovering/Resolving]
  - Back pain [Recovering/Resolving]
  - Movement disorder [Recovering/Resolving]
  - Spinal disorder [Unknown]
  - Peripheral swelling [Recovering/Resolving]
  - Bone pain [Recovering/Resolving]
  - Arthralgia [Recovering/Resolving]
  - Malaise [Unknown]
  - Headache [Unknown]
  - Pyrexia [Unknown]
  - Cardiac disorder [Unknown]
  - Discharge [Recovering/Resolving]
  - Psoriasis [Recovering/Resolving]
  - Erythema [Recovered/Resolved]
  - Drug ineffective [Unknown]
